FAERS Safety Report 10369827 (Version 1)
Quarter: 2014Q3

REPORT INFORMATION
  Report Type: Spontaneous
  Country: BR (occurrence: BR)
  Receive Date: 20140808
  Receipt Date: 20140808
  Transmission Date: 20150326
  Serious: Yes (Other)
  Sender: FDA-Public Use
  Company Number: BR-ACCORD-025145

PATIENT
  Age: 61 Year
  Sex: Female
  Weight: 77.1 kg

DRUGS (5)
  1. NAUSEDRON [Concomitant]
     Active Substance: ONDANSETRON HYDROCHLORIDE
     Indication: PROPHYLAXIS
     Route: 042
     Dates: start: 20140724, end: 20140724
  2. DIPHENHYDRAMINE [Concomitant]
     Active Substance: DIPHENHYDRAMINE
     Indication: PROPHYLAXIS
     Dosage: SF 100 ML + DIPHENHYDRAMINE
     Route: 042
     Dates: start: 20140724, end: 20140724
  3. DEXAMETHASONE. [Concomitant]
     Active Substance: DEXAMETHASONE
     Indication: PROPHYLAXIS
     Dosage: SF 100 ML + DEXAMETHASONE
     Route: 042
     Dates: start: 20140724, end: 20140724
  4. RANITIDINE [Concomitant]
     Active Substance: RANITIDINE\RANITIDINE HYDROCHLORIDE
     Indication: PROPHYLAXIS
     Route: 042
     Dates: start: 20140724, end: 20140724
  5. PACLITAXEL/PACLITAXEL LIPOSOME [Suspect]
     Active Substance: PACLITAXEL
     Indication: BREAST CANCER
     Route: 042
     Dates: start: 20140724, end: 20140724

REACTIONS (8)
  - Tachycardia [Recovered/Resolved]
  - Hypertension [Recovered/Resolved]
  - Nausea [None]
  - Erythema [None]
  - Infusion related reaction [None]
  - Respiratory distress [Recovered/Resolved]
  - Hyperaemia [Recovered/Resolved]
  - Body temperature decreased [None]

NARRATIVE: CASE EVENT DATE: 20140724
